FAERS Safety Report 4387121-7 (Version None)
Quarter: 2004Q2

REPORT INFORMATION
  Report Type: 
  Country: None (occurrence: None)
  Receive Date: 20040629
  Receipt Date: 20040629
  Transmission Date: 20050107
  Serious: Yes (Other)
  Sender: FDA-Public Use
  Company Number: None

PATIENT
  Sex: Female
  Weight: 57.6068 kg

DRUGS (1)
  1. ADDERALL XR 20 [Suspect]
     Indication: SYNCOPE
     Dosage: 1 DAILY
     Dates: start: 20040205, end: 20040512

REACTIONS (5)
  - ABDOMINAL PAIN [None]
  - ANOREXIA [None]
  - CYANOSIS [None]
  - LUPUS-LIKE SYNDROME [None]
  - SKIN ULCER [None]
